FAERS Safety Report 22975900 (Version 3)
Quarter: 2024Q4

REPORT INFORMATION
  Report Type: Report from Study
  Country: CA (occurrence: CA)
  Receive Date: 20230925
  Receipt Date: 20241003
  Transmission Date: 20250115
  Serious: Yes (Other)
  Sender: JOHNSON AND JOHNSON
  Company Number: CA-JNJFOC-20230947025

PATIENT
  Sex: Female

DRUGS (2)
  1. REMICADE [Suspect]
     Active Substance: INFLIXIMAB
     Indication: Colitis ulcerative
     Dosage: PATIENT RECEIVED LAST INFUSION ON 23-AUG-2023
     Route: 041
  2. REMICADE [Suspect]
     Active Substance: INFLIXIMAB
     Dosage: DOSE REPORTED AS 598 MG?EXPIRY ALSO REPORTED AS JAN/2027
     Route: 041
     Dates: start: 20180122

REACTIONS (2)
  - Skin cancer [Not Recovered/Not Resolved]
  - Impaired healing [Recovered/Resolved]
